FAERS Safety Report 4563839-8 (Version None)
Quarter: 2005Q1

REPORT INFORMATION
  Report Type: 
  Country: None (occurrence: None)
  Receive Date: 20050112
  Receipt Date: 20050112
  Transmission Date: 20050727
  Serious: Yes (Other)
  Sender: FDA-Public Use
  Company Number: None

PATIENT
  Age: 10 Year
  Sex: Female
  Weight: 13.6079 kg

DRUGS (1)
  1. REMERON [Suspect]
     Dosage: 45 MG TO 80 MG GOING A MAY 1ST
     Dates: start: 20040306, end: 20040928

REACTIONS (2)
  - PHARMACEUTICAL PRODUCT COMPLAINT [None]
  - SLEEP TERROR [None]
